FAERS Safety Report 24443704 (Version 2)
Quarter: 2024Q4

REPORT INFORMATION
  Report Type: Report from Study
  Country: US (occurrence: US)
  Receive Date: 20241016
  Receipt Date: 20241017
  Transmission Date: 20250115
  Serious: No
  Sender: ROCHE
  Company Number: US-ROCHE-1937520

PATIENT
  Age: 47 Year
  Sex: Female
  Weight: 52.5 kg

DRUGS (9)
  1. RITUXAN [Suspect]
     Active Substance: RITUXIMAB
     Indication: Multiple sclerosis
     Dosage: 100 ML (1000 MG EVERY 6 MONTHS)
     Route: 042
     Dates: start: 201202
  2. RITUXAN [Suspect]
     Active Substance: RITUXIMAB
     Dosage: 100 ML (1000 MG) EVERY 6 MONTHS
     Route: 042
     Dates: start: 20210511
  3. RITUXAN [Suspect]
     Active Substance: RITUXIMAB
     Route: 042
  4. BACLOFEN [Concomitant]
     Active Substance: BACLOFEN
     Dosage: 10 MG TABLET
  5. CHOLECALCIFEROL [Concomitant]
     Active Substance: CHOLECALCIFEROL
  6. DIAZEPAM [Concomitant]
     Active Substance: DIAZEPAM
     Dosage: 2 MG TAB
  7. MACROBID [Concomitant]
     Active Substance: NITROFURANTOIN\NITROFURANTOIN MONOHYDRATE
     Dosage: 100 MG CAP
  8. SERTRALINE [Concomitant]
     Active Substance: SERTRALINE HYDROCHLORIDE
  9. UBIQUINOL [Concomitant]
     Active Substance: UBIQUINOL
     Dosage: 100 MG CAPSULE

REACTIONS (2)
  - No adverse event [Unknown]
  - Off label use [Unknown]
